FAERS Safety Report 4679346-8 (Version None)
Quarter: 2005Q2

REPORT INFORMATION
  Report Type: 
  Country: None (occurrence: None)
  Receive Date: 20050602
  Receipt Date: 20050413
  Transmission Date: 20051028
  Serious: Yes (Other)
  Sender: FDA-Public Use
  Company Number: US-GLAXOSMITHKLINE-A0554041A

PATIENT
  Age: 55 Year
  Sex: Female

DRUGS (2)
  1. FLONASE [Suspect]
     Route: 045
     Dates: start: 19990101, end: 19990101
  2. HORMONE REPLACEMENT(NAME NOT KNOWN) [Concomitant]

REACTIONS (2)
  - DIZZINESS [None]
  - HALLUCINATION [None]
